FAERS Safety Report 4330460-6 (Version None)
Quarter: 2004Q2

REPORT INFORMATION
  Report Type: 
  Country: None (occurrence: None)
  Receive Date: 20040401
  Receipt Date: 20040401
  Transmission Date: 20050107
  Serious: Yes (Death, Hospitalization)
  Sender: FDA-Public Use
  Company Number: None

PATIENT
  Age: 73 Year
  Sex: Male

DRUGS (10)
  1. WARFARIN SODIUM [Suspect]
     Indication: CEREBROVASCULAR ACCIDENT
     Dosage: UD QD ORAL
     Route: 048
  2. WARFARIN SODIUM [Suspect]
     Indication: INTRACARDIAC THROMBUS
     Dosage: UD QD ORAL
     Route: 048
  3. ALBUTEROL [Concomitant]
  4. CLONIDINE HCL [Concomitant]
  5. FELODIPINE [Concomitant]
  6. IPRATROPIUM BROMIDE [Concomitant]
  7. LISINOPRIL [Concomitant]
  8. LOVASTATIN [Concomitant]
  9. METOPROLOL [Concomitant]
  10. COUMADIN [Concomitant]

REACTIONS (13)
  - CEREBRAL HAEMORRHAGE [None]
  - CONVULSION [None]
  - ECHOCARDIOGRAM ABNORMAL [None]
  - EJECTION FRACTION DECREASED [None]
  - FLUID OVERLOAD [None]
  - INTERNATIONAL NORMALISED RATIO DECREASED [None]
  - INTRACARDIAC THROMBUS [None]
  - LABILE BLOOD PRESSURE [None]
  - MENTAL STATUS CHANGES [None]
  - PULMONARY OEDEMA [None]
  - RESPIRATORY FAILURE [None]
  - SUBDURAL HAEMATOMA [None]
  - VENTRICULAR HYPOKINESIA [None]
